FAERS Safety Report 13725042 (Version 2)
Quarter: 2017Q4

REPORT INFORMATION
  Report Type: Spontaneous
  Country: US (occurrence: US)
  Receive Date: 20170706
  Receipt Date: 20171026
  Transmission Date: 20180320
  Serious: No
  Sender: FDA-Public Use
  Company Number: US-ASTRAZENECA-2017SE68375

PATIENT
  Age: 25535 Day
  Sex: Female
  Weight: 65.8 kg

DRUGS (2)
  1. OXYGEN. [Concomitant]
     Active Substance: OXYGEN
     Route: 055
     Dates: start: 2013
  2. SYMBICORT [Suspect]
     Active Substance: BUDESONIDE\FORMOTEROL FUMARATE DIHYDRATE
     Indication: CHRONIC OBSTRUCTIVE PULMONARY DISEASE
     Dosage: 160/4.5 MICROGRAMS, TWO TIMES A DAY
     Route: 055
     Dates: start: 2016

REACTIONS (7)
  - Mood altered [Unknown]
  - Fatigue [Unknown]
  - Device issue [Unknown]
  - Tooth disorder [Unknown]
  - Intentional device misuse [Unknown]
  - Dysphonia [Unknown]
  - Circumstance or information capable of leading to medication error [Unknown]
